FAERS Safety Report 10172586 (Version 1)
Quarter: 2014Q2

REPORT INFORMATION
  Report Type: Spontaneous
  Country: US (occurrence: US)
  Receive Date: 20140515
  Receipt Date: 20140515
  Transmission Date: 20141212
  Serious: No
  Sender: FDA-Public Use
  Company Number: US-009507513-1404USA014268

PATIENT
  Sex: Female

DRUGS (1)
  1. OXYTROL FOR WOMEN [Suspect]
     Indication: PRODUCT USED FOR UNKNOWN INDICATION
     Dosage: UNK, UNKNOWN
     Route: 062
     Dates: start: 20140331

REACTIONS (7)
  - Urticaria [Unknown]
  - Blister [Unknown]
  - Contusion [Unknown]
  - Pain [Unknown]
  - Application site erythema [Unknown]
  - Pruritus [Unknown]
  - Drug ineffective [Unknown]
